FAERS Safety Report 13855836 (Version 2)
Quarter: 2018Q3

REPORT INFORMATION
  Report Type: Spontaneous
  Country: US (occurrence: US)
  Receive Date: 20170810
  Receipt Date: 20180827
  Transmission Date: 20181010
  Serious: No
  Sender: FDA-Public Use
  Company Number: US-VIFOR (INTERNATIONAL) INC.-VIT-2017-00598

PATIENT
  Age: 67 Year
  Sex: Female

DRUGS (30)
  1. PARACETAMOL [Concomitant]
     Active Substance: ACETAMINOPHEN
  2. METOLAZONE. [Concomitant]
     Active Substance: METOLAZONE
  3. SIMETHICONE (DIMETHICONE) [Concomitant]
     Active Substance: DIMETHICONE
  4. SENNOSIDE A+B [Concomitant]
     Active Substance: SENNOSIDES A AND B
  5. LOPERAMIDE HYDROCHLORIDE. [Concomitant]
     Active Substance: LOPERAMIDE HYDROCHLORIDE
  6. PROBIOTIC ACIDOPHILUS XTRA [Concomitant]
  7. RANITIDINE HYDROCHLORIDE. [Concomitant]
     Active Substance: RANITIDINE HYDROCHLORIDE
  8. TUMS [Concomitant]
     Active Substance: CALCIUM CARBONATE
  9. VELTASSA [Suspect]
     Active Substance: PATIROMER
     Indication: HYPERKALAEMIA
     Route: 048
     Dates: start: 20160601
  10. CELLCEPT [Concomitant]
     Active Substance: MYCOPHENOLATE MOFETIL\MYCOPHENOLATE MOFETIL HYDROCHLORIDE
  11. LEVOTHYROXINE SODIUM. [Concomitant]
     Active Substance: LEVOTHYROXINE SODIUM
  12. RETIN?A [Concomitant]
     Active Substance: TRETINOIN
  13. BIOTIN [Concomitant]
     Active Substance: BIOTIN
  14. ERGOCALCIFEROL/ASCORBIC ACID/CALCIUM PANTOTHENATE/ERGOCALCIFEROL/NICOTINAMIDE/PYRIDOXINE HYDROCHLORI [Concomitant]
  15. SODIUM BICARBONATE. [Concomitant]
     Active Substance: SODIUM BICARBONATE
  16. ZOFRAN [Concomitant]
     Active Substance: ONDANSETRON HYDROCHLORIDE
  17. CARVEDILOL. [Concomitant]
     Active Substance: CARVEDILOL
  18. PROMETHAZINE HYDROCHLORIDE. [Concomitant]
     Active Substance: PROMETHAZINE HYDROCHLORIDE
  19. COLECALCIFEROL [Concomitant]
     Active Substance: CHOLECALCIFEROL
  20. VELTASSA [Suspect]
     Active Substance: PATIROMER
     Route: 048
     Dates: start: 201606
  21. CITRACAL+D [Concomitant]
  22. ACETYLSALICYLIC ACID [Concomitant]
     Active Substance: ASPIRIN
  23. FISH OIL [Concomitant]
     Active Substance: FISH OIL
  24. CYANOCOBALAMIN. [Concomitant]
     Active Substance: CYANOCOBALAMIN
  25. MAGNESIUM [Concomitant]
     Active Substance: MAGNESIUM
  26. PREDNISONE. [Concomitant]
     Active Substance: PREDNISONE
  27. PROGRAF [Concomitant]
     Active Substance: TACROLIMUS\TACROLIMUS ANHYDROUS
  28. SODIUM POLYSTYRENE SULFONATE. [Concomitant]
     Active Substance: SODIUM POLYSTYRENE SULFONATE
  29. VALIUM [Concomitant]
     Active Substance: DIAZEPAM
  30. LORATADINE. [Concomitant]
     Active Substance: LORATADINE

REACTIONS (2)
  - Diarrhoea [Recovered/Resolved]
  - Product preparation error [Unknown]

NARRATIVE: CASE EVENT DATE: 2016
